FAERS Safety Report 18324092 (Version 1)
Quarter: 2020Q3

REPORT INFORMATION
  Report Type: Spontaneous
  Country: US (occurrence: US)
  Receive Date: 20200929
  Receipt Date: 20200929
  Transmission Date: 20201103
  Serious: Yes (Other)
  Sender: FDA-Public Use
  Company Number: None

PATIENT
  Age: 70 Year
  Sex: Male
  Weight: 140 kg

DRUGS (22)
  1. DEXAMETHASONE NA PHOS [Concomitant]
     Dates: start: 20200925, end: 20200927
  2. ONDANSETRON [Concomitant]
     Active Substance: ONDANSETRON
     Dates: start: 20200926, end: 20200926
  3. ZINC SULFATE (ORAL) [Concomitant]
     Dates: start: 20200924, end: 20200929
  4. ZOSYN [Concomitant]
     Active Substance: PIPERACILLIN SODIUM\TAZOBACTAM SODIUM
     Dates: start: 20200926, end: 20200928
  5. ATORVASTATIN [Concomitant]
     Active Substance: ATORVASTATIN
     Dates: start: 20200925, end: 20200927
  6. MAGNESIUM OXIDE. [Concomitant]
     Active Substance: MAGNESIUM OXIDE
     Dates: start: 20200924, end: 20200926
  7. POTASSIUM CHLORIDE ER TABLETS [Concomitant]
     Active Substance: POTASSIUM CHLORIDE
     Dates: start: 20200924, end: 20200929
  8. SODIUM CHLORIDE 0.9%  DRIP [Concomitant]
     Dates: start: 20200923, end: 20200929
  9. REMDESIVIR. [Suspect]
     Active Substance: REMDESIVIR
     Indication: COVID-19
     Dosage: ?          OTHER FREQUENCY:ONCE;?
     Route: 040
     Dates: start: 20200926, end: 20200926
  10. REMDESIVIR. [Suspect]
     Active Substance: REMDESIVIR
     Indication: COVID-19
     Route: 040
     Dates: start: 20200927, end: 20200927
  11. INSULIN (GLARGINE, LISPRO, AND SLIDING?SCALE REGULAR) [Concomitant]
     Dates: start: 20200924, end: 20200927
  12. METFORMIN [Concomitant]
     Active Substance: METFORMIN HYDROCHLORIDE
     Dates: start: 20200924, end: 20200926
  13. TOCILIZUMAB. [Concomitant]
     Active Substance: TOCILIZUMAB
     Dates: start: 20200925, end: 20200925
  14. GABAPENTIN. [Concomitant]
     Active Substance: GABAPENTIN
     Dates: start: 20200924, end: 20200929
  15. LISINOPRIL. [Concomitant]
     Active Substance: LISINOPRIL
     Dates: start: 20200925, end: 20200926
  16. ALBUTEROL INHALER [Concomitant]
     Active Substance: ALBUTEROL
     Dates: start: 20200924, end: 20200928
  17. ASPIRIN EC [Concomitant]
     Active Substance: ASPIRIN
     Dates: start: 20200925, end: 20200928
  18. ASCORBIC ACID        1,500 MG Q6H IV [Concomitant]
     Dates: start: 20200924, end: 20200927
  19. ENOXAPARIN [Concomitant]
     Active Substance: ENOXAPARIN
     Dates: start: 20200924, end: 20200929
  20. HYDROCHLOROTHIAZIDE. [Concomitant]
     Active Substance: HYDROCHLOROTHIAZIDE
     Dates: start: 20200925, end: 20200926
  21. METOPROLOL. [Concomitant]
     Active Substance: METOPROLOL
     Dates: start: 20200924, end: 20200929
  22. AMLODIPINE [Concomitant]
     Active Substance: AMLODIPINE BESYLATE
     Dates: start: 20200925, end: 20200926

REACTIONS (4)
  - Large intestine perforation [None]
  - Hypovolaemia [None]
  - Hypoperfusion [None]
  - Acute kidney injury [None]

NARRATIVE: CASE EVENT DATE: 20200927
